FAERS Safety Report 6819363-2 (Version None)
Quarter: 2010Q3

REPORT INFORMATION
  Report Type: 
  Country: None (occurrence: None)
  Receive Date: 20100707
  Receipt Date: 20100628
  Transmission Date: 20110219
  Serious: No
  Sender: FDA-Public Use
  Company Number: GB-SANOFI-AVENTIS-200921476GDDC

PATIENT
  Age: 18 Year
  Sex: Female

DRUGS (2)
  1. LEFLUNOMIDE [Suspect]
     Route: 048
     Dates: start: 20090907
  2. METHOTREXATE [Concomitant]
     Route: 048
     Dates: start: 20090501, end: 20090901

REACTIONS (1)
  - DRUG EXPOSURE DURING PREGNANCY [None]
